FAERS Safety Report 5743805-7 (Version None)
Quarter: 2008Q2

REPORT INFORMATION
  Report Type: 
  Country: None (occurrence: None)
  Receive Date: 20080519
  Receipt Date: 20080519
  Transmission Date: 20081010
  Serious: Yes (Other)
  Sender: FDA-Public Use
  Company Number: None

PATIENT
  Age: 4 Year
  Sex: Female
  Weight: 18.1439 kg

DRUGS (1)
  1. ALLEGRA [Suspect]
     Indication: SEASONAL ALLERGY
     Dosage: 1 TSP BY MOUTH   TWICE DAILY  PO
     Route: 048
     Dates: start: 20080508, end: 20080510

REACTIONS (6)
  - CONDITION AGGRAVATED [None]
  - CRYING [None]
  - ECZEMA [None]
  - HYPERSENSITIVITY [None]
  - MEDICATION ERROR [None]
  - PRURITUS [None]
